FAERS Safety Report 9869442 (Version 2)
Quarter: 2014Q1

REPORT INFORMATION
  Report Type: Spontaneous
  Country: US (occurrence: US)
  Receive Date: 20140205
  Receipt Date: 20140312
  Transmission Date: 20141002
  Serious: No
  Sender: FDA-Public Use
  Company Number: US-PFIZER INC-2014030611

PATIENT
  Age: 57 Year
  Sex: Female

DRUGS (2)
  1. XELJANZ [Suspect]
     Indication: RHEUMATOID ARTHRITIS
     Dosage: 5 MG, 2X/DAY
     Route: 048
     Dates: start: 201304
  2. METHOTREXATE [Concomitant]

REACTIONS (6)
  - Oropharyngeal pain [Unknown]
  - Drug ineffective [Unknown]
  - Cough [Unknown]
  - Sinusitis [Unknown]
  - Fatigue [Unknown]
  - Nodule [Unknown]
